FAERS Safety Report 24765622 (Version 1)
Quarter: 2024Q4

REPORT INFORMATION
  Report Type: Spontaneous
  Country: US (occurrence: None)
  Receive Date: 20241220
  Receipt Date: 20241220
  Transmission Date: 20250115
  Serious: Yes (Death)
  Sender: Public
  Company Number: None

PATIENT
  Age: 19 Year
  Sex: Male

DRUGS (1)
  1. TADALAFIL [Suspect]
     Active Substance: TADALAFIL
     Indication: Heart disease congenital
     Dosage: FREQUENCY : DAILY;?

REACTIONS (3)
  - Respiratory tract infection viral [None]
  - Respiratory failure [None]
  - Blood pressure abnormal [None]
